FAERS Safety Report 8776601 (Version 3)
Quarter: 2012Q4

REPORT INFORMATION
  Report Type: 
  Country: JP (occurrence: JP)
  Receive Date: 20120910
  Receipt Date: 20121121
  Transmission Date: 20130627
  Serious: Yes (Life-Threatening)
  Sender: FDA-Public Use
  Company Number: PHHY2010JP75379

PATIENT
  Age: 43 Year
  Sex: Male
  Weight: 50 kg

DRUGS (24)
  1. CLOZARIL [Suspect]
     Indication: SCHIZOPHRENIA
     Dosage: 12.5 mg, UNK
     Route: 048
     Dates: start: 20101014, end: 20101014
  2. CLOZARIL [Suspect]
     Dosage: 25 mg, UNK
     Route: 048
     Dates: start: 20101015, end: 20101017
  3. CLOZARIL [Suspect]
     Dosage: 50 mg, UNK
     Dates: start: 20101018, end: 20101021
  4. CLOZARIL [Suspect]
     Dosage: 75 mg, UNK
     Route: 048
     Dates: start: 20101022, end: 20101022
  5. CLOZARIL [Suspect]
     Dosage: 100 mg, UNK
     Route: 048
     Dates: start: 20101023, end: 20101024
  6. CLOZARIL [Suspect]
     Dosage: 125 mg, UNK
     Route: 048
     Dates: start: 20101025, end: 20101027
  7. CLOZARIL [Suspect]
     Dosage: 150 mg, UNK
     Route: 048
     Dates: start: 20101028, end: 20101030
  8. LOSIZOPILON [Concomitant]
     Dosage: 300 mg, UNK
     Route: 048
     Dates: start: 20101030
  9. LOSIZOPILON [Concomitant]
     Dosage: 150 mg, UNK
     Route: 048
  10. LEVOTOMIN [Concomitant]
     Dosage: 100 mg, UNK
     Route: 048
  11. RISPERIDONE [Concomitant]
     Dosage: 9 mg, UNK
     Route: 048
     Dates: start: 20101028
  12. RISPERIDONE [Concomitant]
     Dosage: 6 mg, UNK
     Route: 048
  13. BLONANSERIN [Concomitant]
     Route: 048
  14. LONASEN [Concomitant]
     Dosage: 24 mg, UNK
     Route: 048
     Dates: start: 20100916
  15. LONASEN [Concomitant]
     Dosage: 12 mg, UNK
     Route: 048
     Dates: end: 20101030
  16. VALERIN [Concomitant]
     Dosage: 1200 mg, UNK
     Route: 048
     Dates: start: 20100902
  17. VALERIN [Concomitant]
     Dosage: 1000 mg, UNK
     Route: 048
     Dates: end: 20101030
  18. BICAMOL [Concomitant]
     Indication: SCHIZOPHRENIA
     Dosage: 6 mg, UNK
     Route: 048
     Dates: start: 20100902, end: 20101030
  19. GASMOTIN [Concomitant]
     Indication: SCHIZOPHRENIA
     Dosage: 15 mg, UNK
     Route: 048
     Dates: start: 20100902, end: 20101030
  20. VEGETAMIN [Concomitant]
     Indication: SCHIZOPHRENIA
     Dosage: 1 DF, UNK
     Route: 048
     Dates: start: 20100902, end: 20101030
  21. ISOMYTAL [Concomitant]
     Indication: SCHIZOPHRENIA
     Dosage: 200 mg, UNK
     Route: 048
     Dates: start: 20100902, end: 20101030
  22. BROVARIN [Concomitant]
     Indication: SCHIZOPHRENIA
     Dosage: 400 mg, UNK
     Route: 048
     Dates: start: 20100902, end: 20101030
  23. FLUNITRAZEPAM [Concomitant]
     Indication: SCHIZOPHRENIA
     Dosage: 4 mg, UNK
     Route: 048
     Dates: start: 20100902, end: 20101030
  24. HEPARIN [Concomitant]

REACTIONS (7)
  - Status epilepticus [Recovered/Resolved]
  - Altered state of consciousness [Recovered/Resolved]
  - Muscle twitching [Recovered/Resolved]
  - Pneumonia aspiration [Recovered/Resolved]
  - Pyrexia [Unknown]
  - Glucose tolerance impaired [Unknown]
  - White blood cell count increased [Unknown]
